FAERS Safety Report 17805837 (Version 1)
Quarter: 2020Q3

REPORT INFORMATION
  Report Type: Spontaneous
  Country: US (occurrence: US)
  Receive Date: 20200520
  Receipt Date: 20200520
  Transmission Date: 20201105
  Serious: Yes (Other)
  Sender: FDA-Public Use
  Company Number: US-ROCHE-2602199

PATIENT
  Sex: Male
  Weight: 70.37 kg

DRUGS (1)
  1. ALECTINIB. [Suspect]
     Active Substance: ALECTINIB
     Indication: NON-SMALL CELL LUNG CANCER
     Route: 048
     Dates: start: 20200401

REACTIONS (5)
  - Metastases to central nervous system [Unknown]
  - Metastases to bone [Unknown]
  - Feeling abnormal [Unknown]
  - Peripheral swelling [Unknown]
  - Transfusion [Unknown]
